FAERS Safety Report 16898477 (Version 1)
Quarter: 2019Q4

REPORT INFORMATION
  Report Type: Spontaneous
  Country: JP (occurrence: JP)
  Receive Date: 20191009
  Receipt Date: 20191009
  Transmission Date: 20200122
  Serious: Yes (Hospitalization)
  Sender: FDA-Public Use
  Company Number: JP-ASTRAZENECA-2019SF27028

PATIENT
  Age: 68 Year
  Sex: Female

DRUGS (7)
  1. TRAMAL OD [Concomitant]
     Active Substance: TRAMADOL
     Route: 048
     Dates: start: 20180426
  2. AZUNOL GARGLE LIQUID [Concomitant]
     Route: 065
     Dates: start: 20180426
  3. HOCHUEKKITO [Suspect]
     Active Substance: HERBALS
     Indication: DECREASED APPETITE
     Route: 048
     Dates: start: 20190808
  4. SULPIRIDE [Concomitant]
     Active Substance: SULPIRIDE
     Route: 048
     Dates: start: 20180428
  5. NEXIUM [Concomitant]
     Active Substance: ESOMEPRAZOLE MAGNESIUM
     Route: 048
     Dates: start: 20180426
  6. LYNPARZA [Suspect]
     Active Substance: OLAPARIB
     Indication: OVARIAN CANCER
     Route: 048
     Dates: start: 20180426
  7. OLANZAPINE OD [Concomitant]
     Active Substance: OLANZAPINE
     Route: 048
     Dates: start: 20180426

REACTIONS (2)
  - Decreased appetite [Unknown]
  - Pneumonia [Recovering/Resolving]

NARRATIVE: CASE EVENT DATE: 20190720
